FAERS Safety Report 6294899-4 (Version None)
Quarter: 2009Q3

REPORT INFORMATION
  Report Type: 
  Country: None (occurrence: None)
  Receive Date: 20090731
  Receipt Date: 20090731
  Transmission Date: 20100115
  Serious: No
  Sender: FDA-Public Use
  Company Number: None

PATIENT
  Sex: Female
  Weight: 81.6475 kg

DRUGS (8)
  1. CLOZAPINE [Suspect]
     Indication: SCHIZOPHRENIA
     Dosage: 450 MG DAILY PO
     Route: 048
     Dates: start: 20040101, end: 20090430
  2. . [Concomitant]
  3. GABAPENTIN [Concomitant]
  4. AVANDIA [Concomitant]
  5. POTASSIUM CHLORIDE [Concomitant]
  6. SIMVASTATIN [Concomitant]
  7. FENOFIBRATE [Concomitant]
  8. RANITIDINE [Concomitant]

REACTIONS (1)
  - ANAEMIA [None]
